FAERS Safety Report 7959619-3 (Version None)
Quarter: 2011Q4

REPORT INFORMATION
  Report Type: 
  Country: None (occurrence: None)
  Receive Date: 20111206
  Receipt Date: 20111128
  Transmission Date: 20120403
  Serious: No
  Sender: FDA-Public Use
  Company Number: US-JNJFOC-20111111690

PATIENT
  Sex: Female
  Weight: 65.77 kg

DRUGS (6)
  1. WELLBUTRIN [Concomitant]
     Indication: DEPRESSION
     Route: 048
     Dates: start: 20010101, end: 20110101
  2. NASCOBAL [Concomitant]
     Indication: ANAEMIA
     Route: 045
  3. DURAGESIC-100 [Suspect]
     Indication: ARACHNOIDITIS
     Dosage: 100UG/HR+100UG/HR
     Route: 062
     Dates: start: 20110801
  4. FENTANYL-100 [Suspect]
     Indication: ARACHNOIDITIS
     Route: 062
     Dates: end: 20110101
  5. TOPAMAX [Concomitant]
     Indication: NEUROPATHY PERIPHERAL
     Route: 048
  6. VITAMIN B-12 [Concomitant]
     Indication: ANAEMIA
     Route: 058

REACTIONS (4)
  - PRODUCT QUALITY ISSUE [None]
  - INADEQUATE ANALGESIA [None]
  - BREAKTHROUGH PAIN [None]
  - WRONG TECHNIQUE IN DRUG USAGE PROCESS [None]
